FAERS Safety Report 4635561-0 (Version None)
Quarter: 2005Q2

REPORT INFORMATION
  Report Type: 
  Country: None (occurrence: None)
  Receive Date: 20050413
  Receipt Date: 20050408
  Transmission Date: 20051028
  Serious: Yes (Other)
  Sender: FDA-Public Use
  Company Number: 2005056273

PATIENT

DRUGS (2)
  1. LIPITOR [Suspect]
     Indication: ILL-DEFINED DISORDER
  2. PERINDOPRIL ERBUMINE (PERINDOPRIL ERBUMINE) [Suspect]
     Indication: ILL-DEFINED DISORDER

REACTIONS (1)
  - GUILLAIN-BARRE SYNDROME [None]
